FAERS Safety Report 9008338 (Version 2)
Quarter: 2013Q1

REPORT INFORMATION
  Report Type: Spontaneous
  Country: US (occurrence: US)
  Receive Date: 20130111
  Receipt Date: 20130307
  Transmission Date: 20140127
  Serious: Yes (Hospitalization)
  Sender: FDA-Public Use
  Company Number: PHEH2013US000965

PATIENT
  Age: 81 Year
  Sex: Female
  Weight: 69.84 kg

DRUGS (7)
  1. RECLAST [Suspect]
     Indication: OSTEOPOROSIS
     Dosage: 5MG/100ML ,ONCE A YEAR
     Route: 042
     Dates: start: 20120829
  2. AMIODARONE [Concomitant]
  3. OCUVIT [Concomitant]
  4. FLOVENT [Concomitant]
     Indication: ASTHMA
     Dosage: 1 DF, BID
  5. LEVOXYL [Concomitant]
     Indication: HYPOTHYROIDISM
     Dosage: UNK UKN, UNK
     Route: 048
  6. TRAVATAN Z [Concomitant]
     Indication: GLAUCOMA
     Dosage: UNK UKN, UNK
  7. CALCIUM [Concomitant]

REACTIONS (8)
  - Pulmonary oedema [Unknown]
  - Cardiac failure [Unknown]
  - Atrial fibrillation [Unknown]
  - Swelling face [Recovering/Resolving]
  - Lip swelling [Unknown]
  - Pain in jaw [Recovering/Resolving]
  - Urticaria [Unknown]
  - Rash [Recovering/Resolving]
